FAERS Safety Report 8777025 (Version 2)
Quarter: 2012Q4

REPORT INFORMATION
  Report Type: 
  Country: PL (occurrence: PL)
  Receive Date: 20120911
  Receipt Date: 20121004
  Transmission Date: 20130627
  Serious: Yes (Other)
  Sender: FDA-Public Use
  Company Number: PL-WATSON-2012-15580

PATIENT
  Age: 30 Year
  Sex: Female

DRUGS (10)
  1. BROMOCRIPTINE MESYLATE (UNKNOWN) [Suspect]
     Indication: PROLACTINOMA
     Dosage: 20 mg, daily
     Route: 065
  2. BROMOCRIPTINE MESYLATE (UNKNOWN) [Suspect]
     Dosage: 15 mg, daily
     Route: 065
  3. BROMOCRIPTINE MESYLATE (UNKNOWN) [Suspect]
     Dosage: 7.5 mg, daily
     Route: 065
  4. CLARITHROMYCIN (UNKNOWN) [Suspect]
     Indication: RESPIRATORY TRACT INFECTION
     Dosage: UNK
     Route: 065
  5. KETOCONAZOLE [Suspect]
     Indication: FUNGAL INFECTION
     Dosage: UNK
     Route: 065
  6. CABERGOLINE (UNKNOWN) [Suspect]
     Indication: HYPERPROLACTINAEMIA
     Dosage: 0.25 mg, 2/week
     Route: 065
  7. CABERGOLINE (UNKNOWN) [Suspect]
     Dosage: 2 mg, 1/week
     Route: 065
  8. GABAPENTIN (UNKNOWN) [Suspect]
     Indication: EPILEPSY
     Dosage: UNK
     Route: 065
  9. LAMOTRIGINE (UNKNOWN) [Suspect]
     Indication: EPILEPSY
     Dosage: UNK
     Route: 065
  10. OXCARBAZEPINE [Suspect]
     Indication: EPILEPSY
     Dosage: gradually increased from 600 to 1200 mg/day
     Route: 065

REACTIONS (14)
  - Drug interaction [Recovered/Resolved]
  - Hyperprolactinaemia [Recovered/Resolved]
  - Orthostatic hypotension [Recovered/Resolved]
  - Oedema [Recovered/Resolved]
  - Vomiting [Recovered/Resolved]
  - Constipation [Recovered/Resolved]
  - Mucosal dryness [Recovered/Resolved]
  - Psychomotor hyperactivity [Recovered/Resolved]
  - Abnormal behaviour [Recovered/Resolved]
  - Dizziness [Recovered/Resolved]
  - Diplopia [Recovered/Resolved]
  - Body mass index increased [Recovered/Resolved]
  - Head injury [None]
  - Post-traumatic epilepsy [None]
